FAERS Safety Report 8813426 (Version 1)
Quarter: 2012Q4

REPORT INFORMATION
  Report Type: 
  Country: US (occurrence: US)
  Receive Date: 20120927
  Receipt Date: 20120927
  Transmission Date: 20130627
  Serious: No
  Sender: FDA-Public Use
  Company Number: US-AMGEN-USASP2012048237

PATIENT
  Age: 82 Year
  Sex: Female

DRUGS (7)
  1. PROLIA [Suspect]
     Indication: OSTEOPOROSIS
     Dosage: 60 mg, UNK
     Dates: start: 2011
  2. LOSARTAN [Concomitant]
  3. OSTEO BI-FLEX [Concomitant]
     Dosage: UNK
  4. MULTIVITAMIN                       /00097801/ [Concomitant]
     Dosage: UNK
  5. CRANBERRY                          /01512301/ [Concomitant]
     Dosage: UNK UNK, qd
     Dates: start: 2012
  6. FELODIPINE [Concomitant]
     Dosage: UNK UNK, qd
  7. IBUPROFEN [Concomitant]
     Dosage: UNK
     Dates: start: 2012

REACTIONS (3)
  - Urinary tract infection [Unknown]
  - Cystitis [Recovering/Resolving]
  - Genital erythema [Recovering/Resolving]
